FAERS Safety Report 10704428 (Version 1)
Quarter: 2014Q4

REPORT INFORMATION
  Report Type: Report from Study
  Country: US (occurrence: None)
  Receive Date: 20141224
  Receipt Date: 20141224
  Transmission Date: 20150529
  Serious: No
  Sender: FDA-Public Use
  Company Number: CABO-14004837

PATIENT
  Age: 49 Year
  Sex: Female

DRUGS (8)
  1. CARDURA [Concomitant]
     Active Substance: DOXAZOSIN MESYLATE
  2. COUMADIN [Concomitant]
     Active Substance: WARFARIN SODIUM
  3. NORCO (HYDROCODONE BITRATERATE, PARACETAMOL) [Concomitant]
  4. PHENERGAN [Concomitant]
     Active Substance: PROMETHAZINE HYDROCHLORIDE
  5. COMETRIQ [Suspect]
     Active Substance: CABOZANTINIB S-MALATE
     Indication: THYROID CANCER
     Route: 048
     Dates: start: 20140905
  6. TRAMADOL (TRAMADOL) [Concomitant]
     Active Substance: TRAMADOL
  7. XANAX [Concomitant]
     Active Substance: ALPRAZOLAM
  8. PHENTROID [Concomitant]

REACTIONS (4)
  - Nausea [None]
  - Diarrhoea [None]
  - Gastroenteritis viral [None]
  - Fatigue [None]

NARRATIVE: CASE EVENT DATE: 2014
